FAERS Safety Report 24674403 (Version 1)
Quarter: 2024Q4

REPORT INFORMATION
  Report Type: Spontaneous
  Country: US (occurrence: US)
  Receive Date: 20241128
  Receipt Date: 20241128
  Transmission Date: 20250115
  Serious: No
  Sender: ABBVIE
  Company Number: US-ABBVIE-6019907

PATIENT
  Age: 76 Year
  Sex: Female

DRUGS (1)
  1. LINZESS [Suspect]
     Active Substance: LINACLOTIDE
     Indication: Gastrointestinal motility disorder
     Dosage: EVERY MORNING ON AN EMPTY STOMACH
     Route: 048
     Dates: start: 20241112, end: 20241120

REACTIONS (8)
  - Influenza like illness [Unknown]
  - Constipation [Not Recovered/Not Resolved]
  - Abdominal pain upper [Unknown]
  - Therapeutic product effect incomplete [Not Recovered/Not Resolved]
  - Abdominal pain upper [Recovered/Resolved]
  - Retching [Unknown]
  - Abdominal distension [Unknown]
  - Off label use [Unknown]

NARRATIVE: CASE EVENT DATE: 20241101
